FAERS Safety Report 8816095 (Version 1)
Quarter: 2012Q4

REPORT INFORMATION
  Report Type: 
  Country: FR (occurrence: FR)
  Receive Date: 20120928
  Receipt Date: 20120928
  Transmission Date: 20130627
  Serious: Yes (Life-Threatening, Hospitalization, Other)
  Sender: FDA-Public Use
  Company Number: FR-PFIZER INC-2012237130

PATIENT
  Age: 72 Year
  Sex: Male

DRUGS (10)
  1. CELEBREX [Suspect]
     Indication: PAIN IN EXTREMITY
     Dosage: 200 mg, 1x/day
     Route: 048
     Dates: start: 20120615
  2. DIGOXIN [Interacting]
     Dosage: 0.25 mg, 1x/day
     Route: 048
  3. FUROSEMIDE [Concomitant]
     Dosage: 40 mg, 1x/day
     Route: 048
  4. PERINDOPRIL [Concomitant]
     Dosage: 8 mg, 1x/day
     Route: 048
  5. LOGIMAX [Concomitant]
     Dosage: UNK
     Route: 048
  6. PRAVASTATIN SODIUM [Concomitant]
     Dosage: UNK
     Route: 048
  7. EUPRESSYL [Concomitant]
     Dosage: UNK
     Route: 048
  8. PREVISCAN [Concomitant]
     Dosage: UNK
     Route: 048
  9. ALDACTONE [Concomitant]
     Dosage: 50 mg, 1x/day
     Route: 048
  10. LOPERAMIDE [Concomitant]
     Dosage: UNK
     Route: 048

REACTIONS (12)
  - Cardiogenic shock [Recovered/Resolved]
  - Cardioactive drug level increased [Recovered/Resolved]
  - Drug interaction [Recovered/Resolved]
  - Muscular weakness [Unknown]
  - Asthenia [Unknown]
  - Dyspnoea [Unknown]
  - Anuria [Unknown]
  - Septic shock [Recovered/Resolved]
  - Respiratory failure [Recovered/Resolved]
  - Renal failure acute [Recovered/Resolved]
  - Hyperkalaemia [Recovered/Resolved]
  - Overdose [Unknown]
